FAERS Safety Report 16655587 (Version 1)
Quarter: 2019Q3

REPORT INFORMATION
  Report Type: Spontaneous
  Country: PL (occurrence: PL)
  Receive Date: 20190801
  Receipt Date: 20190801
  Transmission Date: 20191004
  Serious: Yes (Hospitalization, Other)
  Sender: FDA-Public Use
  Company Number: PL-TEVA-2019-PL-1085994

PATIENT
  Age: 67 Year
  Sex: Female
  Weight: 78 kg

DRUGS (3)
  1. ZARZIO [Concomitant]
     Active Substance: FILGRASTIM
     Dosage: STRENGTH: 48 MU ?5 AMPULES
  2. CARBOPLATIN. [Suspect]
     Active Substance: CARBOPLATIN
     Indication: NEOPLASM MALIGNANT
     Dosage: 539.5 MG
     Route: 042
     Dates: start: 20190523
  3. VINORELBINE [Suspect]
     Active Substance: VINORELBINE TARTRATE
     Indication: NEOPLASM MALIGNANT
     Dosage: DOSE:  2 X 44.25 MG ,88.5 MG
     Route: 042
     Dates: start: 20190523, end: 20190530

REACTIONS (4)
  - Leukopenia [Unknown]
  - Neutropenia [Unknown]
  - Haemoglobin decreased [Unknown]
  - Thrombocytopenia [Unknown]

NARRATIVE: CASE EVENT DATE: 20190602
